FAERS Safety Report 24676001 (Version 1)
Quarter: 2024Q4

REPORT INFORMATION
  Report Type: Spontaneous
  Country: US (occurrence: US)
  Receive Date: 20241128
  Receipt Date: 20241128
  Transmission Date: 20250114
  Serious: No
  Sender: ALEXION PHARMACEUTICALS
  Company Number: US-SANOFI-02259770

PATIENT
  Age: 2 Week
  Weight: 3.79 kg

DRUGS (2)
  1. BEYFORTUS [Suspect]
     Active Substance: NIRSEVIMAB-ALIP
     Dosage: 100 MG, 1X
  2. DEVICE [Suspect]
     Active Substance: DEVICE

REACTIONS (1)
  - Incorrect dose administered [Unknown]
